FAERS Safety Report 16021518 (Version 1)
Quarter: 2019Q1

REPORT INFORMATION
  Report Type: Spontaneous
  Country: US (occurrence: US)
  Receive Date: 20190301
  Receipt Date: 20190301
  Transmission Date: 20190418
  Serious: Yes (Hospitalization, Other)
  Sender: FDA-Public Use
  Company Number: US-VELOXIS PHARMACEUTICALS, INC.-2019VELUS1419

PATIENT
  Age: 49 Year
  Sex: Male

DRUGS (9)
  1. VALGANCICLOVIR. [Concomitant]
     Active Substance: VALGANCICLOVIR
     Indication: PROPHYLAXIS
     Dosage: UNK
     Route: 065
  2. MYCOPHENOLATE [Suspect]
     Active Substance: MYCOPHENOLIC ACID
     Indication: RENAL TRANSPLANT
     Dosage: 720 MG, BID
     Route: 065
  3. MYCOPHENOLATE [Suspect]
     Active Substance: MYCOPHENOLIC ACID
     Dosage: 360 MG, TID
     Route: 065
  4. ENVARSUS XR [Suspect]
     Active Substance: TACROLIMUS
     Indication: RENAL TRANSPLANT
     Dosage: UNK UNK, GOAL 8?9 NG/ML
     Route: 065
  5. ALEMTUZUMAB [Concomitant]
     Active Substance: ALEMTUZUMAB
     Indication: IMMUNE TOLERANCE INDUCTION
     Dosage: UNK
     Route: 065
  6. ENVARSUS XR [Suspect]
     Active Substance: TACROLIMUS
     Dosage: 3 MG, BID
     Route: 065
  7. ENVARSUS XR [Suspect]
     Active Substance: TACROLIMUS
     Dosage: UNK UNK, GOAL 3-4
     Route: 065
  8. MYCOPHENOLATE [Suspect]
     Active Substance: MYCOPHENOLIC ACID
     Dosage: 180 MG, BID
     Route: 065
  9. TRIMETHOPRIM SULFAMETHOXAZOLE [Concomitant]
     Active Substance: SULFAMETHOXAZOLE\TRIMETHOPRIM
     Indication: PROPHYLAXIS
     Dosage: UNK
     Route: 065

REACTIONS (6)
  - Lymphopenia [Unknown]
  - Nocardiosis [Recovered/Resolved]
  - Pneumonia [Recovered/Resolved]
  - Neutropenia [Unknown]
  - Extradural abscess [Recovered/Resolved]
  - Spinal cord abscess [Recovered/Resolved]
